FAERS Safety Report 5669451 (Version 26)
Quarter: 2013Q3

REPORT INFORMATION
  Report Type: Spontaneous
  Country: US (occurrence: US)
  Receive Date: 20041014
  Receipt Date: 20130731
  Transmission Date: 20140515
  Serious: Yes (Death, Hospitalization, Other)
  Sender: FDA-Public Use
  Company Number: PHEH2004US10740

PATIENT
  Age: 49 Year
  Sex: Female
  Weight: 99.8 kg

DRUGS (54)
  1. ZOMETA [Suspect]
     Indication: METASTASES TO BONE
     Dosage: UNK UKN, MONTHLY
     Route: 042
     Dates: start: 2001, end: 200406
  2. ARIMIDEX [Concomitant]
     Indication: BREAST CANCER
  3. GLUCOVANCE [Concomitant]
     Indication: DIABETES MELLITUS
  4. PREDNISONE [Concomitant]
  5. MONOPRIL [Concomitant]
     Indication: HYPERTENSION
  6. DOXEPIN [Concomitant]
     Indication: DEPRESSION
  7. WELLBUTRIN [Concomitant]
     Indication: DEPRESSION
  8. OXYCONTIN [Concomitant]
     Indication: BONE PAIN
     Dosage: 80 MG, QD
     Dates: start: 2001
  9. NEURONTIN [Concomitant]
  10. HYDROCHLOROTHIAZIDE [Concomitant]
  11. POTASSIUM CHLORIDE [Concomitant]
  12. XANAX [Concomitant]
  13. TEMAZEPAM [Concomitant]
  14. PHENERGAN ^AVENTIS PHARMA^ [Concomitant]
  15. IBUPROFEN [Concomitant]
  16. BLACK COHOSH [Concomitant]
  17. IRON [Concomitant]
  18. ZOLADEX [Concomitant]
  19. GLYBURIDE W/METFORMIN [Concomitant]
  20. ALFAXALONE [Concomitant]
  21. PROMETHAZINE [Concomitant]
  22. ASPIRIN ^BAYER^ [Concomitant]
  23. MOTRIN [Concomitant]
  24. VICOPROFEN [Concomitant]
  25. REGLAN                                  /USA/ [Concomitant]
  26. OXYCODONE [Concomitant]
  27. ZYRTEC [Concomitant]
  28. SEPTRA [Concomitant]
  29. TOPROL XL [Concomitant]
  30. AUGMENTIN [Concomitant]
  31. VICODIN [Concomitant]
  32. VIOXX [Concomitant]
  33. PAXIL [Concomitant]
  34. DIOVAN [Concomitant]
  35. LEXAPRO [Concomitant]
  36. METFORMIN [Concomitant]
  37. RIFAMPIN [Concomitant]
  38. ALLEGRA [Concomitant]
  39. LANTUS [Concomitant]
  40. ALPRAZOLAM [Concomitant]
  41. BENADRYL ^PFIZER WARNER-LAMBERT^ [Concomitant]
  42. OXYIR [Concomitant]
  43. DEFLAZACORT [Concomitant]
  44. DILAUDID [Concomitant]
     Dosage: 2 MG, UNK
  45. ZOFRAN [Concomitant]
     Dosage: 4 MG, UNK
  46. ZOSYN [Concomitant]
  47. BENAZEPRIL [Concomitant]
  48. PROTONIX ^PHARMACIA^ [Concomitant]
  49. OXYGEN [Concomitant]
  50. ULTRAM [Concomitant]
  51. ANACIN [Concomitant]
  52. STARLIX [Concomitant]
  53. SINEQUAN [Concomitant]
  54. CHEMOTHERAPEUTICS [Concomitant]

REACTIONS (108)
  - Diabetes mellitus [Fatal]
  - Wound [Unknown]
  - Ulcer [Unknown]
  - Wound haemorrhage [Unknown]
  - Nephrolithiasis [Unknown]
  - Sepsis [Unknown]
  - Hypoglycaemia [Unknown]
  - Hypokalaemia [Unknown]
  - Pyrexia [Unknown]
  - Renal failure acute [Recovered/Resolved]
  - Hypotension [Unknown]
  - Dehydration [Unknown]
  - Atelectasis [Unknown]
  - Hypoxia [Unknown]
  - Microcytic anaemia [Unknown]
  - Pain [Unknown]
  - Cellulitis [Recovering/Resolving]
  - Wound infection staphylococcal [Unknown]
  - Abscess neck [Unknown]
  - Altered state of consciousness [Unknown]
  - Skin disorder [Unknown]
  - Excoriation [Unknown]
  - Rash [Unknown]
  - Osteonecrosis of jaw [Unknown]
  - Gingival disorder [Not Recovered/Not Resolved]
  - Jaw disorder [Not Recovered/Not Resolved]
  - Pain in jaw [Unknown]
  - Facial pain [Unknown]
  - Mouth ulceration [Unknown]
  - Dental caries [Unknown]
  - Aphasia [Unknown]
  - Tooth disorder [Unknown]
  - Gingival pain [Unknown]
  - Osteomyelitis [Unknown]
  - Oral candidiasis [Unknown]
  - Tongue injury [Unknown]
  - Abscess jaw [Unknown]
  - Gingival recession [Unknown]
  - Bone loss [Unknown]
  - Periodontitis [Unknown]
  - Hepatic steatosis [Unknown]
  - Pulmonary mass [Unknown]
  - Withdrawal syndrome [Unknown]
  - Neurodermatitis [Unknown]
  - Retinopathy [Unknown]
  - Diplopia [Unknown]
  - Vision blurred [Unknown]
  - Eye pain [Unknown]
  - Accommodation disorder [Unknown]
  - Altered visual depth perception [Unknown]
  - Visual impairment [Unknown]
  - Vitreous floaters [Unknown]
  - Lacrimation increased [Unknown]
  - Venous angioma of brain [Unknown]
  - Uterine haemorrhage [Unknown]
  - Adenomyosis [Unknown]
  - Pelvic floor muscle weakness [Unknown]
  - Hepatomegaly [Unknown]
  - Transient ischaemic attack [Unknown]
  - Ataxia [Unknown]
  - Cardiomegaly [Unknown]
  - Chemical poisoning [Unknown]
  - Multi-organ failure [Unknown]
  - Colitis [Unknown]
  - Pulmonary embolism [Unknown]
  - Skin lesion [Unknown]
  - Pneumonia [Unknown]
  - Urinary tract infection [Unknown]
  - Intervertebral disc degeneration [Unknown]
  - Arthropathy [Unknown]
  - Coccydynia [Unknown]
  - Obesity [Unknown]
  - Myelopathy [Unknown]
  - Mental disorder [Unknown]
  - Oesophagitis [Unknown]
  - Abdominal pain [Unknown]
  - Lymphoedema [Unknown]
  - Anaemia [Unknown]
  - Back pain [Unknown]
  - Iron deficiency anaemia [Unknown]
  - Weight increased [Unknown]
  - Paraesthesia [Unknown]
  - Oedema [Unknown]
  - Arthralgia [Unknown]
  - Joint swelling [Unknown]
  - Intervertebral disc protrusion [Unknown]
  - Hot flush [Unknown]
  - Dyspnoea [Unknown]
  - Constipation [Unknown]
  - Nasal congestion [Unknown]
  - Ureteral disorder [Unknown]
  - Vertigo [Unknown]
  - Migraine [Unknown]
  - Hiatus hernia [Unknown]
  - Labyrinthitis [Unknown]
  - Laceration [Unknown]
  - Head injury [Unknown]
  - Sinusitis [Unknown]
  - Confusional state [Unknown]
  - Fall [Unknown]
  - Cataract [Unknown]
  - Respiratory distress [Unknown]
  - Bundle branch block right [Unknown]
  - Suicidal ideation [Unknown]
  - Tremor [Unknown]
  - Pain in extremity [Unknown]
  - Muscular weakness [Unknown]
  - Musculoskeletal pain [Unknown]
